FAERS Safety Report 10254867 (Version 1)
Quarter: 2014Q2

REPORT INFORMATION
  Report Type: Spontaneous
  Country: US (occurrence: None)
  Receive Date: 20140620
  Receipt Date: 20140620
  Transmission Date: 20141212
  Serious: No
  Sender: FDA-Public Use
  Company Number: None

PATIENT
  Age: 46 Year
  Sex: Female
  Weight: 122.47 kg

DRUGS (2)
  1. MISOPROSTOL [Suspect]
     Indication: UTERINE DISORDER
     Dosage: 2 PILLS, 2 PILLS, ONE NIGHT, TAKEN BY MOUTH
     Route: 048
     Dates: start: 20140617, end: 20140618
  2. MISOPROSTOL [Suspect]
     Indication: BIOPSY
     Dosage: 2 PILLS, 2 PILLS, ONE NIGHT, TAKEN BY MOUTH
     Route: 048
     Dates: start: 20140617, end: 20140618

REACTIONS (1)
  - Disturbance in sexual arousal [None]
